FAERS Safety Report 4836470-4 (Version None)
Quarter: 2005Q4

REPORT INFORMATION
  Report Type: 
  Country: None (occurrence: None)
  Receive Date: 20051123
  Receipt Date: 20051118
  Transmission Date: 20060501
  Serious: Yes (Other)
  Sender: FDA-Public Use
  Company Number: PHEH2005US12723

PATIENT
  Age: 41 Year
  Sex: Female
  Weight: 58.956 kg

DRUGS (4)
  1. PAXIL [Concomitant]
  2. XANAX [Concomitant]
  3. ZANTAC [Concomitant]
  4. LAMISIL [Suspect]
     Dosage: 250 MG, QD
     Route: 048

REACTIONS (1)
  - SUICIDAL IDEATION [None]
